FAERS Safety Report 19112218 (Version 1)
Quarter: 2021Q2

REPORT INFORMATION
  Report Type: Spontaneous
  Country: US (occurrence: US)
  Receive Date: 20210409
  Receipt Date: 20210409
  Transmission Date: 20210717
  Serious: Yes (Hospitalization)
  Sender: FDA-Public Use
  Company Number: None

PATIENT
  Sex: Male
  Weight: 116 kg

DRUGS (2)
  1. CASIRIVIMAB/IMDEVIMAB (EUA) (CASIRIVIMAB 1200MG/IMDEVIMAB 1200MG (EUA)) [Suspect]
     Active Substance: CASIRIVIMAB\IMDEVIMAB
  2. CASIRIVIMAB/IMDEVIMAB (EUA) (CASIRIVIMAB 1200MG/IMDEVIMAB 1200MG (EUA)) [Suspect]
     Active Substance: CASIRIVIMAB\IMDEVIMAB
     Indication: COVID-19
     Dosage: OTHER DOSE: 1200 MG/ 1200 MG MG
     Route: 042
     Dates: start: 20210321, end: 20210321

REACTIONS (4)
  - Atrial flutter [None]
  - Tachycardia [None]
  - Palpitations [None]
  - Chest X-ray abnormal [None]

NARRATIVE: CASE EVENT DATE: 20210321
